FAERS Safety Report 11220888 (Version 1)
Quarter: 2015Q2

REPORT INFORMATION
  Report Type: Spontaneous
  Country: CN (occurrence: CN)
  Receive Date: 20150626
  Receipt Date: 20150626
  Transmission Date: 20150821
  Serious: Yes (Death)
  Sender: FDA-Public Use
  Company Number: CN-UNITED THERAPEUTICS-UNT-2015-007169

PATIENT
  Age: 52 Year
  Sex: Male
  Weight: 55 kg

DRUGS (3)
  1. REMODULIN [Suspect]
     Active Substance: TREPROSTINIL
     Dosage: 0.00375 ?G/KG, CONTINUING
     Route: 058
  2. REMODULIN [Suspect]
     Active Substance: TREPROSTINIL
     Dosage: 0.0025 ?G/KG, CONTINUING
     Route: 058
  3. REMODULIN [Suspect]
     Active Substance: TREPROSTINIL
     Indication: PULMONARY ARTERIAL HYPERTENSION
     Dosage: 0.0075 ?G/KG, CONTINUING
     Route: 058
     Dates: start: 20150605, end: 20150611

REACTIONS (4)
  - Nausea [Unknown]
  - Chest discomfort [Unknown]
  - Cardiogenic shock [Fatal]
  - Vomiting [Unknown]

NARRATIVE: CASE EVENT DATE: 20150609
